FAERS Safety Report 8398535-2 (Version None)
Quarter: 2012Q2

REPORT INFORMATION
  Report Type: 
  Country: None (occurrence: None)
  Receive Date: 20120531
  Receipt Date: 20120521
  Transmission Date: 20120825
  Serious: Yes (Hospitalization, Other)
  Sender: FDA-Public Use
  Company Number: JP-CELGENEUS-087-21880-12040181

PATIENT
  Sex: Female

DRUGS (3)
  1. TRANSFUSION [Concomitant]
     Indication: TRANSFUSION
     Dosage: 2 UNITS
     Route: 041
  2. REVLIMID [Suspect]
     Dosage: 10 MILLIGRAM
     Route: 048
     Dates: start: 20120126, end: 20120215
  3. REVLIMID [Suspect]
     Dosage: 10 MILLIGRAM
     Route: 048
     Dates: start: 20120223, end: 20120314

REACTIONS (2)
  - HISTIOCYTOSIS HAEMATOPHAGIC [None]
  - URINARY TRACT INFECTION [None]
